FAERS Safety Report 12414698 (Version 1)
Quarter: 2016Q2

REPORT INFORMATION
  Report Type: Spontaneous
  Country: GB (occurrence: GB)
  Receive Date: 20160529
  Receipt Date: 20160529
  Transmission Date: 20160815
  Serious: Yes (Other)
  Sender: FDA-Public Use
  Company Number: GB-DEXPHARM-20161094

PATIENT
  Age: 42 Year
  Sex: Female

DRUGS (1)
  1. CHLORHEXIDINE [Suspect]
     Active Substance: CHLORHEXIDINE
     Dosage: SKIN PREPARATION
     Route: 061

REACTIONS (2)
  - Thermal burn [Recovering/Resolving]
  - Procedural complication [Unknown]

NARRATIVE: CASE EVENT DATE: 20160427
